FAERS Safety Report 19066400 (Version 1)
Quarter: 2021Q1

REPORT INFORMATION
  Report Type: Spontaneous
  Country: US (occurrence: US)
  Receive Date: 20210328
  Receipt Date: 20210328
  Transmission Date: 20210420
  Serious: No
  Sender: FDA-Public Use
  Company Number: US-TORRENT-00011003

PATIENT
  Age: 18 Month
  Sex: Male

DRUGS (1)
  1. MONTELUKAST SODIUM ORAL GRANULES USP [Suspect]
     Active Substance: MONTELUKAST SODIUM
     Indication: ASTHMA
     Route: 048
     Dates: start: 20210315

REACTIONS (2)
  - Product preparation issue [Unknown]
  - No adverse event [Unknown]

NARRATIVE: CASE EVENT DATE: 20210315
